FAERS Safety Report 5657616-4 (Version None)
Quarter: 2008Q1

REPORT INFORMATION
  Report Type: 
  Country: None (occurrence: None)
  Receive Date: 20080219
  Receipt Date: 20071127
  Transmission Date: 20080703
  Serious: No
  Sender: FDA-Public Use
  Company Number: WAES 0711USA05018

PATIENT
  Age: 56 Year
  Sex: Female

DRUGS (3)
  1. JANUVIA [Suspect]
     Indication: TYPE 2 DIABETES MELLITUS
     Dosage: 100 MG/DAILY/PO
     Route: 048
     Dates: start: 20070701, end: 20071127
  2. AVANDIA [Concomitant]
  3. ENBREL [Concomitant]

REACTIONS (5)
  - IMPAIRED GASTRIC EMPTYING [None]
  - LIPASE INCREASED [None]
  - PANCREATIC ATROPHY [None]
  - PANCREATIC DUCT DILATATION [None]
  - RENAL CYST [None]
